FAERS Safety Report 20291490 (Version 1)
Quarter: 2022Q1

REPORT INFORMATION
  Report Type: Spontaneous
  Country: CN (occurrence: CN)
  Receive Date: 20220104
  Receipt Date: 20220104
  Transmission Date: 20220423
  Serious: Yes (Other)
  Sender: FDA-Public Use
  Company Number: CN-NOVARTISPH-NVSC2021CN300436

PATIENT
  Age: 24 Year
  Sex: Female
  Weight: 40 kg

DRUGS (6)
  1. SACUBITRIL\VALSARTAN [Suspect]
     Active Substance: SACUBITRIL\VALSARTAN
     Indication: Ventricular remodelling
     Dosage: 50 MG, BID
     Route: 065
  2. CYCLOSPORINE [Suspect]
     Active Substance: CYCLOSPORINE
     Indication: Systemic lupus erythematosus
     Dosage: 25 MG, Q12H
     Route: 065
  3. VORICONAZOLE [Suspect]
     Active Substance: VORICONAZOLE
     Indication: Antifungal treatment
     Dosage: 200 MG, Q12H
     Route: 048
  4. METHYLPREDNISOLONE [Concomitant]
     Active Substance: METHYLPREDNISOLONE
     Indication: Systemic lupus erythematosus
     Dosage: 32 MG, QD
     Route: 048
  5. HYDROXYCHLOROQUINE SULFATE [Concomitant]
     Active Substance: HYDROXYCHLOROQUINE SULFATE
     Indication: Systemic lupus erythematosus
     Dosage: 200 MG, BID
     Route: 065
  6. METOPROLOL TARTRATE [Concomitant]
     Active Substance: METOPROLOL TARTRATE
     Indication: Myocardial hypoxia
     Dosage: 25 MG, BID
     Route: 065

REACTIONS (2)
  - Hyperkalaemia [Recovered/Resolved]
  - Product use in unapproved indication [Unknown]
